FAERS Safety Report 7313331-2 (Version None)
Quarter: 2011Q1

REPORT INFORMATION
  Report Type: 
  Country: None (occurrence: None)
  Receive Date: 20110225
  Receipt Date: 20110216
  Transmission Date: 20110831
  Serious: Yes (Life-Threatening, Hospitalization)
  Sender: FDA-Public Use
  Company Number: KR-BAYER-2011-009896

PATIENT
  Sex: Male

DRUGS (105)
  1. UNCODEABLE ^UNCLASSIFIABLE^ [Concomitant]
     Dosage: 1 DF, BID
     Route: 048
     Dates: start: 20101221, end: 20110128
  2. GASMOTIN [Concomitant]
     Indication: OESOPHAGITIS
     Dosage: 5 MG, TID
     Route: 048
     Dates: start: 20101207, end: 20101214
  3. LEVOVIR [Concomitant]
     Dosage: 30 MG, QD
     Route: 048
     Dates: start: 20101221, end: 20110128
  4. UNCODEABLE ^UNCLASSIFIABLE^ [Concomitant]
     Indication: ABDOMINAL PAIN
     Dosage: 37.5 MG, TID
     Route: 048
     Dates: start: 20101207, end: 20101214
  5. PANTOLOC [Concomitant]
     Dosage: 40 MG, QD
     Route: 042
     Dates: start: 20110215
  6. CEFOTAXIME [Concomitant]
     Dosage: 2 G, TID
     Route: 042
     Dates: start: 20101218, end: 20101221
  7. ULTRAVIST 150 [Concomitant]
     Dosage: 140 ML, QD
     Route: 042
     Dates: start: 20110215, end: 20110215
  8. LIVACT [AMINO ACIDS NOS] [Concomitant]
     Dosage: 4.15 G, TID
     Route: 048
     Dates: start: 20110113, end: 20110126
  9. NORVASC [Concomitant]
     Dosage: 5 MG, QD
     Route: 048
     Dates: start: 20110113, end: 20110128
  10. ADALAT [Concomitant]
     Indication: HYPERTENSION
     Dosage: 60 MG, QD
     Route: 048
     Dates: start: 20110130
  11. ALBUMIN (HUMAN) [Concomitant]
     Indication: HYPOALBUMINAEMIA
     Dosage: 100 ML, QD
     Route: 042
     Dates: start: 20110129, end: 20110129
  12. SORAFENIB (RAF KINASE INHIBITOR) [Suspect]
     Dosage: 200 MG, QD
     Route: 048
     Dates: start: 20110111, end: 20110111
  13. GASMOTIN [Concomitant]
     Dosage: 5 MG, QD
     Route: 048
     Dates: start: 20101220, end: 20101220
  14. GASMOTIN [Concomitant]
     Dosage: 5 MG, TID
     Route: 048
     Dates: start: 20110106, end: 20110126
  15. GASMOTIN [Concomitant]
     Dosage: 5 MG, BID
     Route: 048
     Dates: start: 20110127, end: 20110128
  16. UNCODEABLE ^UNCLASSIFIABLE^ [Concomitant]
     Dosage: 37.5 MG, TID
     Route: 048
     Dates: start: 20101218, end: 20101219
  17. CASTOR OIL [Concomitant]
     Indication: SURGERY
     Dosage: 50 ML, QD
     Route: 048
     Dates: start: 20101214, end: 20101214
  18. VITAMIN K1 [Concomitant]
     Dosage: 10 MG, QD
     Route: 030
     Dates: start: 20101216, end: 20101216
  19. BOTROPASE [Concomitant]
     Dosage: 2 ML, UNK
     Route: 042
     Dates: start: 20110130
  20. DIPEPTIVEN [Concomitant]
     Indication: MEDICAL DIET
     Dosage: 100 ML, QD
     Route: 042
     Dates: start: 20101216, end: 20101216
  21. ACETYLCYSTEINE [Concomitant]
     Dosage: 200 MG, TID
     Route: 048
     Dates: start: 20101218, end: 20101219
  22. ULTRAVIST 150 [Concomitant]
     Dosage: 140 ML, QD
     Route: 042
     Dates: start: 20110129, end: 20110129
  23. SMECTA [SMECTITE] [Concomitant]
     Indication: PROPHYLAXIS
     Dosage: 20 ML, BID
     Route: 048
     Dates: start: 20101230, end: 20110112
  24. DILATREND [Concomitant]
     Indication: HYPERTENSION
     Dosage: 12.5 MG, UNK
     Dates: start: 20110207
  25. RANITIDINE [Concomitant]
     Dosage: 50 MG, QD
     Route: 042
     Dates: start: 20110215
  26. MEK INHIBITOR (DIHYDROXYPROP-DIFLU-METHOXYPHEN-CYCLOPROPA-SULFAMI) [Suspect]
     Dosage: 50 MG, BID
     Route: 048
     Dates: start: 20101231, end: 20110128
  27. SORAFENIB (RAF KINASE INHIBITOR) [Suspect]
     Indication: HEPATIC NEOPLASM MALIGNANT
     Dosage: 200 MG, QD
     Route: 048
     Dates: start: 20101230, end: 20101230
  28. PANTOLOC [Concomitant]
     Indication: GASTRITIS
     Dosage: 40 MG, QD
     Route: 042
     Dates: start: 20101213, end: 20101214
  29. UNCODEABLE ^UNCLASSIFIABLE^ [Concomitant]
     Dosage: 40 ML, TID
     Route: 048
     Dates: start: 20101209, end: 20101214
  30. FOY [Concomitant]
     Indication: SURGERY
     Dosage: 1500 MG, QD
     Route: 042
     Dates: start: 20101214, end: 20101214
  31. GASTER [Concomitant]
     Indication: SURGERY
     Dosage: 20 MG, BID
     Route: 042
     Dates: start: 20101215, end: 20101216
  32. ACETYLCYSTEINE [Concomitant]
     Indication: SURGERY
     Dosage: 2 ML, BID
     Route: 042
     Dates: start: 20101215, end: 20101215
  33. SILYMARIN [Concomitant]
     Indication: MEDICAL DIET
     Dosage: 500 ML, QD
     Route: 042
     Dates: start: 20110130
  34. DUPHALAC [Concomitant]
     Indication: PROPHYLAXIS
     Dosage: 30 ML, BID
     Route: 050
     Dates: start: 20110130
  35. SORAFENIB (RAF KINASE INHIBITOR) [Suspect]
     Dosage: 400 MG, QD
     Route: 048
     Dates: start: 20110113, end: 20110127
  36. SORAFENIB (RAF KINASE INHIBITOR) [Suspect]
     Dosage: 400 MG, BID
     Route: 048
     Dates: start: 20110128, end: 20110128
  37. UNCODEABLE ^UNCLASSIFIABLE^ [Concomitant]
     Dosage: 1 DF, QD
     Route: 048
     Dates: start: 20101217, end: 20101217
  38. GASMOTIN [Concomitant]
     Dosage: 5 MG, BID
     Route: 048
     Dates: start: 20101217, end: 20101217
  39. PANTOLOC [Concomitant]
     Dosage: 40 MG, QD
     Route: 042
     Dates: start: 20110129
  40. ACETYLCYSTEINE [Concomitant]
     Dosage: 2 ML, TID
     Route: 042
     Dates: start: 20101216, end: 20101216
  41. BOTROPASE [Concomitant]
     Indication: SURGERY
     Dosage: 2 ML, BID
     Route: 042
     Dates: start: 20101215, end: 20101215
  42. LIDOCAINE [Concomitant]
     Indication: SURGERY
     Dosage: UNK UNK, QD
     Route: 061
     Dates: start: 20101215, end: 20101215
  43. GLYCOPYRROLATE [Concomitant]
     Indication: SURGERY
     Dosage: 0.4 MG, QD
     Route: 042
     Dates: start: 20101215, end: 20101215
  44. PROPOFOL [Concomitant]
     Indication: SURGERY
     Dosage: 120 MG, QD
     Route: 042
     Dates: start: 20101215, end: 20101215
  45. ACETYLCYSTEINE [Concomitant]
     Indication: PROPHYLAXIS
     Dosage: 200 MG, QD
     Route: 048
     Dates: start: 20101220, end: 20101220
  46. LIVACT [AMINO ACIDS NOS] [Concomitant]
     Dosage: 4.15 G, BID
     Route: 048
     Dates: start: 20110106, end: 20110112
  47. PETHIDINE HCL [Concomitant]
     Indication: ABDOMINAL PAIN
     Dosage: 50 MG, BID
     Route: 042
     Dates: start: 20110129, end: 20110129
  48. SORAFENIB (RAF KINASE INHIBITOR) [Suspect]
     Dosage: 600 MG (200 MG/400 MG), QD
     Route: 048
     Dates: start: 20101231, end: 20101231
  49. SORAFENIB (RAF KINASE INHIBITOR) [Suspect]
     Dosage: 400 MG, QD
     Route: 048
     Dates: start: 20110106, end: 20110110
  50. LEVOVIR [Concomitant]
     Indication: HEPATITIS B
     Dosage: 30 MG, QD
     Route: 048
     Dates: start: 20101207, end: 20101214
  51. LEVOVIR [Concomitant]
     Dosage: 30 MG, QD
     Route: 048
     Dates: start: 20101217, end: 20101219
  52. PANTOLOC [Concomitant]
     Indication: OESOPHAGITIS
     Dosage: 40 MG, QD
     Route: 042
     Dates: start: 20101204, end: 20101211
  53. UNCODEABLE ^UNCLASSIFIABLE^ [Concomitant]
     Dosage: 50 ML, TID
     Route: 048
     Dates: start: 20101221, end: 20101223
  54. TYLENOL EXTENDED RELIEF [Concomitant]
     Indication: HEADACHE
     Dosage: 1300 MG, QD
     Route: 048
     Dates: start: 20101212, end: 20101213
  55. METOCLOPRAMIDE HCL [Concomitant]
     Indication: OESOPHAGITIS
     Dosage: 10 MG, QD
     Route: 042
     Dates: start: 20101214, end: 20101214
  56. MIDAZOLAM HCL [Concomitant]
     Indication: SURGERY
     Dosage: 3 MG, QD
     Route: 030
     Dates: start: 20101215, end: 20101215
  57. FENTANYL CITRATE [Concomitant]
     Indication: SURGERY
     Dosage: 0.1 MG, QD
     Route: 042
     Dates: start: 20101215, end: 20101215
  58. UNCODEABLE ^UNCLASSIFIABLE^ [Concomitant]
     Indication: SURGERY
     Dosage: 20 ML, QD
     Route: 042
     Dates: start: 20101215, end: 20101216
  59. BROMEL [Concomitant]
     Indication: SURGERY
     Dosage: 2.2 ML, BID
     Route: 042
     Dates: start: 20101215, end: 20101215
  60. ESMERON [Concomitant]
     Indication: SURGERY
     Dosage: 50 MG, QD
     Route: 042
     Dates: start: 20101215, end: 20101215
  61. PROPOFOL [Concomitant]
     Indication: ENDOSCOPY
     Dosage: 80 MG, QD
     Route: 042
     Dates: start: 20110208, end: 20110208
  62. GLAMIN [Concomitant]
     Indication: MEDICAL DIET
     Dosage: 500 ML, QD
     Route: 042
     Dates: start: 20101216, end: 20101216
  63. PRIMOVIST [Concomitant]
     Indication: NUCLEAR MAGNETIC RESONANCE IMAGING
     Dosage: 10 CC, QD
     Route: 042
     Dates: start: 20101213, end: 20101213
  64. TRAMADOL HCL [Concomitant]
     Indication: ABDOMINAL PAIN
     Dosage: 50 MG, TID
     Route: 042
     Dates: start: 20101220, end: 20101220
  65. NUTRIFLEX LIPID [AMINO ACIDS NOS,CARBOHYDRATES NOS,ELECTROLYTES NOS,LI [Concomitant]
     Indication: MEDICAL DIET
     Dosage: 1.250 ML, QD
     Route: 042
     Dates: start: 20101220, end: 20101220
  66. NORVASC [Concomitant]
     Indication: PROPHYLAXIS
     Dosage: 5 MG, QD
     Route: 048
     Dates: start: 20110106, end: 20110110
  67. NORMIX [Concomitant]
     Indication: PROPHYLAXIS
     Dosage: 400 MG, BID
     Route: 050
     Dates: start: 20110130
  68. MULTI-VITAMINS [Concomitant]
     Indication: MEDICAL DIET
     Dosage: 1 DF, QD
     Route: 048
     Dates: start: 20101207, end: 20101214
  69. PANTOLOC [Concomitant]
     Dosage: 20 MG, QD
     Route: 042
     Dates: start: 20110113, end: 20110128
  70. UNCODEABLE ^UNCLASSIFIABLE^ [Concomitant]
     Dosage: 50 ML, QD
     Route: 048
     Dates: start: 20101220, end: 20101220
  71. DURAGESIC-100 [Concomitant]
     Indication: ABDOMINAL PAIN
     Dosage: 12.5 ?G, QD
     Dates: start: 20101213, end: 20101213
  72. DURAGESIC-100 [Concomitant]
     Dosage: 25 ?G, BIW
     Dates: start: 20101221, end: 20101223
  73. VITAMIN K1 [Concomitant]
     Indication: SURGERY
     Dosage: 10 MG, BID
     Route: 030
     Dates: start: 20101215, end: 20101215
  74. ADELAVIN [Concomitant]
     Indication: SURGERY
     Dosage: 2 ML, QD
     Route: 042
     Dates: start: 20101215, end: 20101216
  75. BOTROPASE [Concomitant]
     Dosage: 2 ML, BID
     Route: 042
     Dates: start: 20110129, end: 20110129
  76. UNCODEABLE ^UNCLASSIFIABLE^ [Concomitant]
     Dosage: 30 MG, QD
     Route: 042
     Dates: start: 20101215, end: 20101216
  77. ACETYLCYSTEINE [Concomitant]
     Dosage: 200 MG, TID
     Route: 048
     Dates: start: 20101221, end: 20101229
  78. TRAMADOL HCL [Concomitant]
     Dosage: 50 MG, QD
     Route: 030
     Dates: start: 20110129, end: 20110129
  79. TRAMADOL HCL [Concomitant]
     Dosage: 50 MG, BID
     Route: 030
     Dates: start: 20110130
  80. ULTRAVIST 150 [Concomitant]
     Dosage: 140 ML, UNK
     Route: 042
     Dates: start: 20110201, end: 20110201
  81. MORPHINE SULFATE [Concomitant]
     Dosage: 5 MG, QD
     Route: 042
     Dates: start: 20110215
  82. MEK INHIBITOR (DIHYDROXYPROP-DIFLU-METHOXYPHEN-CYCLOPROPA-SULFAMI) [Suspect]
     Indication: HEPATIC NEOPLASM MALIGNANT
     Dosage: 50 MG, QD
     Route: 048
     Dates: start: 20101230, end: 20101230
  83. UNCODEABLE ^UNCLASSIFIABLE^ [Concomitant]
     Indication: OESOPHAGITIS
     Dosage: 1 DF, BID
     Route: 048
     Dates: start: 20101207, end: 20101214
  84. GASMOTIN [Concomitant]
     Dosage: 5 MG, TID
     Route: 048
     Dates: start: 20101218, end: 20101219
  85. MEICELIN [Concomitant]
     Indication: SURGERY
     Dosage: 1 G, TID
     Route: 042
     Dates: start: 20101215, end: 20101216
  86. BROMEL [Concomitant]
     Dosage: 2.2 ML, TID
     Route: 042
     Dates: start: 20101216, end: 20101216
  87. CEFOTAXIME [Concomitant]
     Indication: SURGERY
     Dosage: 1 G, BID
     Route: 042
     Dates: start: 20101217, end: 20101217
  88. CEFOTAXIME [Concomitant]
     Dosage: 1 G, QD
     Route: 042
     Dates: start: 20101218, end: 20101218
  89. ULTRAVIST 150 [Concomitant]
     Indication: NUCLEAR MAGNETIC RESONANCE IMAGING
     Dosage: 140 ML, QD
     Route: 042
     Dates: start: 20101221, end: 20101221
  90. LIVACT [AMINO ACIDS NOS] [Concomitant]
     Dosage: 4.15 G, BID
     Route: 048
     Dates: start: 20110127, end: 20110128
  91. ADALAT [Concomitant]
     Dosage: 30 MG, QD
     Route: 048
     Dates: start: 20110131
  92. LASIX [Concomitant]
     Indication: HYPOALBUMINAEMIA
     Dosage: 1 ML, QD
     Route: 042
     Dates: start: 20110129, end: 20110129
  93. HEPATAMINE [Concomitant]
     Indication: MEDICAL DIET
     Dosage: 500 ML, QD
     Route: 042
     Dates: start: 20110215
  94. SORAFENIB (RAF KINASE INHIBITOR) [Suspect]
     Dosage: 200 MG, QD
     Route: 048
     Dates: start: 20110103, end: 20110103
  95. UNCODEABLE ^UNCLASSIFIABLE^ [Concomitant]
     Dosage: 1 DF, BID
     Route: 048
     Dates: start: 20101218, end: 20101219
  96. GASMOTIN [Concomitant]
     Dosage: 5 MG, TID
     Route: 048
     Dates: start: 20101221, end: 20101229
  97. UNCODEABLE ^UNCLASSIFIABLE^ [Concomitant]
     Dosage: 37.5 MG, BID
     Route: 048
     Dates: start: 20101217, end: 20101217
  98. MULTI-VITAMINS [Concomitant]
     Dosage: 1 DF, QD
     Route: 048
     Dates: start: 20101217, end: 20101219
  99. MULTI-VITAMINS [Concomitant]
     Dosage: 1 DF, QD
     Route: 048
     Dates: start: 20101221, end: 20110128
  100. VALIUM [Concomitant]
     Indication: SURGERY
     Dosage: 5 MG, QD
     Route: 048
     Dates: start: 20101214, end: 20101214
  101. PYRIDOSTIGMINE BROMIDE [Concomitant]
     Indication: SURGERY
     Dosage: 20 MG, QD
     Route: 042
     Dates: start: 20101215, end: 20101215
  102. LIDOCAINE [Concomitant]
     Dosage: UNK UNK, QD
     Route: 058
     Dates: start: 20110129, end: 20110129
  103. LIVACT [AMINO ACIDS NOS] [Concomitant]
     Indication: PROPHYLAXIS
     Dosage: 4.15 G, TID
     Route: 048
     Dates: start: 20101230, end: 20110105
  104. NORVASC [Concomitant]
     Indication: HYPERTENSION
     Dosage: 5 MG, QD
     Route: 048
     Dates: start: 20110103, end: 20110104
  105. ALLEGRA [Concomitant]
     Indication: PALMAR-PLANTAR ERYTHRODYSAESTHESIA SYNDROME
     Dosage: 120 MG, BID
     Route: 048
     Dates: start: 20110113, end: 20110128

REACTIONS (3)
  - LIVER CARCINOMA RUPTURED [None]
  - HYPOKALAEMIA [None]
  - ABDOMINAL PAIN [None]
